FAERS Safety Report 18517254 (Version 11)
Quarter: 2025Q1

REPORT INFORMATION
  Report Type: Spontaneous
  Country: US (occurrence: US)
  Receive Date: 20201118
  Receipt Date: 20250225
  Transmission Date: 20250409
  Serious: Yes (Hospitalization, Other)
  Sender: PFIZER
  Company Number: US-PFIZER INC-2020451261

PATIENT
  Age: 73 Year
  Sex: Male
  Weight: 97.98 kg

DRUGS (15)
  1. XELJANZ [Suspect]
     Active Substance: TOFACITINIB CITRATE
     Indication: Psoriasis
     Dosage: 10 MG, 2X/DAY
     Route: 048
     Dates: start: 2019, end: 202006
  2. XELJANZ [Suspect]
     Active Substance: TOFACITINIB CITRATE
     Indication: Psoriatic arthropathy
     Dosage: 5 MG, 1X/DAY
     Route: 048
  3. XELJANZ [Suspect]
     Active Substance: TOFACITINIB CITRATE
  4. ASCORBIC ACID [Concomitant]
     Active Substance: ASCORBIC ACID
  5. BRIMONIDINE [Concomitant]
     Active Substance: BRIMONIDINE TARTRATE
  6. BUDESONIDE [Concomitant]
     Active Substance: BUDESONIDE
  7. CARVEDILOL [Concomitant]
     Active Substance: CARVEDILOL
  8. CYCLOSPORINE [Concomitant]
     Active Substance: CYCLOSPORINE
  9. DOXAZOSIN [Concomitant]
     Active Substance: DOXAZOSIN MESYLATE
  10. FEBUXOSTAT [Concomitant]
     Active Substance: FEBUXOSTAT
  11. JARDIANCE [Concomitant]
     Active Substance: EMPAGLIFLOZIN
  12. LEVOTHYROXINE [Concomitant]
     Active Substance: LEVOTHYROXINE
  13. METFORMIN [Concomitant]
     Active Substance: METFORMIN HYDROCHLORIDE
  14. VITAMIN D3 [Concomitant]
     Active Substance: CHOLECALCIFEROL
  15. ZETIA [Concomitant]
     Active Substance: EZETIMIBE

REACTIONS (10)
  - Cellulitis [Recovered/Resolved with Sequelae]
  - Type 2 diabetes mellitus [Unknown]
  - Atrial fibrillation [Unknown]
  - Chronic kidney disease [Unknown]
  - Condition aggravated [Not Recovered/Not Resolved]
  - Skin injury [Unknown]
  - Rash [Unknown]
  - Eczema [Not Recovered/Not Resolved]
  - Hypertension [Unknown]
  - Off label use [Unknown]
